FAERS Safety Report 18257038 (Version 1)
Quarter: 2020Q3

REPORT INFORMATION
  Report Type: Spontaneous
  Country: US (occurrence: US)
  Receive Date: 20200910
  Receipt Date: 20200910
  Transmission Date: 20201103
  Serious: No
  Sender: FDA-Public Use
  Company Number: None

PATIENT
  Sex: Female

DRUGS (1)
  1. COPAXONE [Suspect]
     Active Substance: GLATIRAMER ACETATE
     Indication: MULTIPLE SCLEROSIS
     Route: 058
     Dates: start: 20200715

REACTIONS (9)
  - Hypoaesthesia [None]
  - Feeling hot [None]
  - Decreased appetite [None]
  - Muscle spasms [None]
  - Therapeutic product effect decreased [None]
  - Tremor [None]
  - Migraine [None]
  - Blindness unilateral [None]
  - Hyperhidrosis [None]
